FAERS Safety Report 20699575 (Version 1)
Quarter: 2022Q2

REPORT INFORMATION
  Report Type: Spontaneous
  Country: CA (occurrence: CA)
  Receive Date: 20220412
  Receipt Date: 20220412
  Transmission Date: 20220720
  Serious: Yes (Death)
  Sender: FDA-Public Use
  Company Number: None

PATIENT
  Age: 54 Year
  Sex: Male
  Weight: 103 kg

DRUGS (6)
  1. ESCITALOPRAM [Suspect]
     Active Substance: ESCITALOPRAM OXALATE
     Indication: Product used for unknown indication
  2. METFORMIN [Suspect]
     Active Substance: METFORMIN HYDROCHLORIDE
     Indication: Product used for unknown indication
  3. FENTANYL [Concomitant]
     Active Substance: FENTANYL
  4. MIDAZOLAM [Concomitant]
     Active Substance: MIDAZOLAM
  5. RIVAROXABAN [Concomitant]
     Active Substance: RIVAROXABAN
  6. ROSUVASTATIN [Concomitant]
     Active Substance: ROSUVASTATIN
     Route: 058

REACTIONS (5)
  - Completed suicide [Fatal]
  - Intentional overdose [Fatal]
  - Metabolic acidosis [Fatal]
  - Overdose [Fatal]
  - Shock [Fatal]
